FAERS Safety Report 11046769 (Version 1)
Quarter: 2015Q2

REPORT INFORMATION
  Report Type: Spontaneous
  Country: US (occurrence: None)
  Receive Date: 20150417
  Receipt Date: 20150417
  Transmission Date: 20150821
  Serious: No
  Sender: FDA-Public Use
  Company Number: None

PATIENT
  Age: 18 Year
  Sex: Male
  Weight: 141 kg

DRUGS (21)
  1. CYTARABINE. [Suspect]
     Active Substance: CYTARABINE
     Dates: end: 20150122
  2. MERCAPTOPURINE. [Suspect]
     Active Substance: MERCAPTOPURINE
     Dates: end: 20141214
  3. ONCASPAR [Suspect]
     Active Substance: PEGASPARGASE
     Dates: end: 20150126
  4. VINCRISTINE SULFATE. [Suspect]
     Active Substance: VINCRISTINE SULFATE
     Dates: end: 20150202
  5. TYLENOL [Concomitant]
     Active Substance: ACETAMINOPHEN
  6. VITAMIN D3 [Concomitant]
     Active Substance: CHOLECALCIFEROL
  7. ZANTAC [Concomitant]
     Active Substance: RANITIDINE HYDROCHLORIDE
  8. SENOKOT [Concomitant]
     Active Substance: SENNOSIDES
  9. FLUCONAZOLE. [Concomitant]
     Active Substance: FLUCONAZOLE
  10. METHOTREXATE [Suspect]
     Active Substance: METHOTREXATE
     Dates: end: 20141223
  11. CALCIUM CARBONATE. [Concomitant]
     Active Substance: CALCIUM CARBONATE
  12. LORAZEPAM. [Concomitant]
     Active Substance: LORAZEPAM
  13. ZOFRAN-ODT [Concomitant]
  14. CYCLOPHOSPHAMIDE. [Suspect]
     Active Substance: CYCLOPHOSPHAMIDE
     Dates: end: 20150112
  15. GLUTAMINE [Concomitant]
     Active Substance: GLUTAMINE
  16. HYDROXINE [Concomitant]
  17. MIRALAX [Concomitant]
     Active Substance: POLYETHYLENE GLYCOL 3350
  18. OMEPRAZOLE. [Concomitant]
     Active Substance: OMEPRAZOLE
  19. PYRIDOXINE [Concomitant]
     Active Substance: PYRIDOXINE
  20. LIDOCAINE-PRILOCAINE CREAM [Concomitant]
  21. SCOPOLAMINE [Suspect]
     Active Substance: SCOPOLAMINE

REACTIONS (2)
  - Thrombocytopenia [None]
  - Neutropenia [None]

NARRATIVE: CASE EVENT DATE: 20150202
